FAERS Safety Report 17405471 (Version 1)
Quarter: 2020Q1

REPORT INFORMATION
  Report Type: Report from Study
  Country: US (occurrence: US)
  Receive Date: 20200212
  Receipt Date: 20200212
  Transmission Date: 20200409
  Serious: Yes (Death, Hospitalization, Other)
  Sender: FDA-Public Use
  Company Number: US-BRISTOL-MYERS SQUIBB COMPANY-BMS-2020-011494

PATIENT
  Age: 77 Year
  Sex: Male
  Weight: 77 kg

DRUGS (2)
  1. IPILIMUMAB [Suspect]
     Active Substance: IPILIMUMAB
     Indication: RENAL CELL CARCINOMA
     Dosage: 1 MILLIGRAM/KILOGRAM ON DAY 1
     Route: 042
     Dates: start: 20190930
  2. NIVOLUMAB [Suspect]
     Active Substance: NIVOLUMAB
     Indication: RENAL CELL CARCINOMA
     Dosage: 3 MG/KG IV ON DAY 1
     Route: 042
     Dates: start: 20190930

REACTIONS (6)
  - Acute kidney injury [Unknown]
  - Thrombocytopenia [Unknown]
  - Anaemia [Unknown]
  - Hypoxia [Fatal]
  - Cerebrovascular accident [Unknown]
  - Colitis [Unknown]

NARRATIVE: CASE EVENT DATE: 20191125
